FAERS Safety Report 14815525 (Version 1)
Quarter: 2018Q2

REPORT INFORMATION
  Report Type: Spontaneous
  Country: US (occurrence: US)
  Receive Date: 20180417
  Receipt Date: 20180417
  Transmission Date: 20180711
  Serious: Yes (Death)
  Sender: FDA-Public Use
  Company Number: None

PATIENT
  Sex: Female

DRUGS (6)
  1. RANITIDINE. [Concomitant]
     Active Substance: RANITIDINE
  2. TEMOZOLOMIDE. [Suspect]
     Active Substance: TEMOZOLOMIDE
     Indication: BRAIN NEOPLASM MALIGNANT
     Route: 048
     Dates: start: 20180222
  3. FAMOTIDINE. [Concomitant]
     Active Substance: FAMOTIDINE
  4. BUMETANID [Concomitant]
  5. LORAZAPAM [Concomitant]
     Active Substance: LORAZEPAM
  6. LEVETIRACETA [Concomitant]

REACTIONS (1)
  - Death [None]
